FAERS Safety Report 15598798 (Version 1)
Quarter: 2018Q4

REPORT INFORMATION
  Report Type: Spontaneous
  Country: JP (occurrence: JP)
  Receive Date: 20181108
  Receipt Date: 20181108
  Transmission Date: 20190205
  Serious: Yes (Hospitalization, Other)
  Sender: FDA-Public Use
  Company Number: JP-OTSUKA-JP-2014-15816

PATIENT
  Age: 9 Decade

DRUGS (2)
  1. ABILIFY [Suspect]
     Active Substance: ARIPIPRAZOLE
     Indication: NEUROPSYCHIATRIC SYMPTOMS
  2. ABILIFY [Suspect]
     Active Substance: ARIPIPRAZOLE
     Indication: DEMENTIA WITH LEWY BODIES
     Dosage: UNK
     Route: 048

REACTIONS (4)
  - Off label use [Unknown]
  - Femoral neck fracture [Recovered/Resolved]
  - Pneumonia [Recovered/Resolved]
  - Therapeutic response unexpected [Unknown]
